FAERS Safety Report 6481698-3 (Version None)
Quarter: 2009Q4

REPORT INFORMATION
  Report Type: 
  Country: None (occurrence: None)
  Receive Date: 20091208
  Receipt Date: 20090323
  Transmission Date: 20100525
  Serious: No
  Sender: FDA-Public Use
  Company Number: US-AMGEN-KDL339763

PATIENT
  Sex: Female

DRUGS (6)
  1. ENBREL [Suspect]
     Indication: PSORIASIS
  2. ENBREL [Suspect]
     Indication: PSORIATIC ARTHROPATHY
  3. LISINOPRIL [Concomitant]
  4. UNKNOWN [Concomitant]
  5. LIPITOR [Concomitant]
  6. NEXIUM [Concomitant]

REACTIONS (2)
  - EXOSTOSIS [None]
  - INJECTION SITE PAIN [None]
